FAERS Safety Report 13233449 (Version 1)
Quarter: 2017Q1

REPORT INFORMATION
  Report Type: Spontaneous
  Country: PT (occurrence: None)
  Receive Date: 20170213
  Receipt Date: 20170213
  Transmission Date: 20170428
  Serious: Yes (Life-Threatening, Other)
  Sender: FDA-Public Use
  Company Number: PT2017K0659LIT

PATIENT
  Age: 34 Year
  Sex: Female

DRUGS (6)
  1. LANSOPRAZOLE GENERIC (LANSOPRAZOLE) UNKNOWN [Suspect]
     Active Substance: LANSOPRAZOLE
  2. RABEPRAZOLE GENERIC (RABEPRAZOLE SODIUM) UNKNOWN [Suspect]
     Active Substance: RABEPRAZOLE SODIUM
  3. ASPIRIN. [Concomitant]
     Active Substance: ASPIRIN
  4. PANTOPRAZOLE GENERIC (PANTOPRAZOLE) UNKNOWN [Suspect]
     Active Substance: PANTOPRAZOLE SODIUM
  5. ESOMEPRAZOLE GENERIC (ESOMEPRAZOLE) UNKNOWN [Suspect]
     Active Substance: ESOMEPRAZOLE
  6. OMEPRAZOLE GENERIC (OMEPRAZOLE) UNKNOWN [Suspect]
     Active Substance: OMEPRAZOLE
     Indication: INFLUENZA LIKE ILLNESS
     Route: 042
     Dates: start: 2007

REACTIONS (5)
  - Angioedema [None]
  - Generalised erythema [None]
  - Dermatitis bullous [None]
  - Rash pruritic [None]
  - Hypersensitivity [None]
